FAERS Safety Report 5589549-6 (Version None)
Quarter: 2008Q1

REPORT INFORMATION
  Report Type: 
  Country: None (occurrence: None)
  Receive Date: 20080114
  Receipt Date: 20080108
  Transmission Date: 20080703
  Serious: Yes (Hospitalization, Other)
  Sender: FDA-Public Use
  Company Number: PHBS2007JP21272

PATIENT
  Age: 67 Year
  Sex: Male
  Weight: 60 kg

DRUGS (1)
  1. DIOVAN [Suspect]
     Indication: HYPERTENSION
     Dosage: 80 MG/DAY
     Route: 048
     Dates: start: 20061201, end: 20071206

REACTIONS (5)
  - CEREBRAL HAEMORRHAGE [None]
  - CONVULSION [None]
  - GAIT DISTURBANCE [None]
  - MEMORY IMPAIRMENT [None]
  - NORMAL PRESSURE HYDROCEPHALUS [None]
